FAERS Safety Report 24002139 (Version 1)
Quarter: 2024Q2

REPORT INFORMATION
  Report Type: Spontaneous
  Country: DE (occurrence: DE)
  Receive Date: 20240622
  Receipt Date: 20240622
  Transmission Date: 20240717
  Serious: Yes (Other)
  Sender: FDA-Public Use
  Company Number: None

PATIENT
  Sex: Female
  Weight: 72 kg

DRUGS (7)
  1. QUETIAPINE [Suspect]
     Active Substance: QUETIAPINE
     Indication: Psychotic disorder
     Dosage: 300 MG/D/ 200 MG RETARDED AND 100 MG UNRETARDED
     Dates: start: 20230330, end: 20231228
  2. INSULIN HUMAN [Concomitant]
     Active Substance: INSULIN HUMAN
     Indication: Gestational diabetes
     Dosage: 16 IE/D / 8-0-0-8 IU/D 2 SEPARATED DOSES
     Dates: start: 20231014, end: 20231228
  3. CODEINE [Concomitant]
     Active Substance: CODEINE
     Indication: Cough
     Dosage: 10 DROPS AT NIGHT, MG UNKNOWN
     Dates: start: 20231102, end: 20231110
  4. METHYLDOPA [Concomitant]
     Active Substance: METHYLDOPA
     Indication: Hypertension
     Dosage: STARTED IN THE COURSE OF PREGNANCY, 2 TABLETS/DAY, NO DETAILS KNOWN
  5. ACTRAPID [Concomitant]
     Active Substance: INSULIN HUMAN
     Indication: Gestational diabetes
     Dosage: 20 IE/D / 8-6-6 IU/D
     Dates: start: 20231014, end: 20231228
  6. PAROXETINE [Concomitant]
     Active Substance: PAROXETINE
     Indication: Psychotic disorder
     Dosage: 80 MG/D/ DOSAGE UNCLEAR 40 OR 80 MG/D
     Dates: start: 20230330, end: 20231228
  7. METOPROLOL SUCCINATE [Concomitant]
     Active Substance: METOPROLOL SUCCINATE
     Indication: Hypertension
     Dosage: 23.75 MG/D
     Dates: start: 20230330, end: 20231228

REACTIONS (2)
  - Gestational diabetes [Recovered/Resolved]
  - Exposure during pregnancy [Unknown]
